FAERS Safety Report 21923773 (Version 2)
Quarter: 2023Q2

REPORT INFORMATION
  Report Type: Spontaneous
  Country: FR (occurrence: FR)
  Receive Date: 20230130
  Receipt Date: 20230605
  Transmission Date: 20230722
  Serious: Yes (Hospitalization)
  Sender: FDA-Public Use
  Company Number: None

PATIENT
  Age: 29 Year
  Sex: Male
  Weight: 89 kg

DRUGS (5)
  1. TEGRETOL [Suspect]
     Active Substance: CARBAMAZEPINE
     Indication: Seizure
     Dosage: 200 MG, Q12H
     Route: 048
     Dates: start: 20221028, end: 20221105
  2. OPDIVO [Suspect]
     Active Substance: NIVOLUMAB
     Indication: Metastatic malignant melanoma
     Dosage: 90 MG, Q3W
     Route: 042
     Dates: start: 20220930, end: 202301
  3. YERVOY [Suspect]
     Active Substance: IPILIMUMAB
     Indication: Metastatic malignant melanoma
     Dosage: 270 MG, Q3W
     Route: 042
     Dates: start: 20220930, end: 20221021
  4. ENTRESTO [Concomitant]
     Active Substance: SACUBITRIL\VALSARTAN
     Indication: Cardiac failure
     Dosage: 1 DOSAGE FORM, Q12H
     Route: 048
     Dates: start: 202204
  5. SOLUPRED [Concomitant]
     Indication: Brain oedema
     Dosage: 40 MG, QD
     Route: 048

REACTIONS (3)
  - Rash maculo-papular [Recovered/Resolved]
  - Haemophagocytic lymphohistiocytosis [Recovered/Resolved]
  - Hepatic cytolysis [Recovered/Resolved]

NARRATIVE: CASE EVENT DATE: 20221103
